FAERS Safety Report 7498996-7 (Version None)
Quarter: 2011Q2

REPORT INFORMATION
  Report Type: 
  Country: None (occurrence: None)
  Receive Date: 20110524
  Receipt Date: 20110509
  Transmission Date: 20111010
  Serious: Yes (Death, Other)
  Sender: FDA-Public Use
  Company Number: US-BAYER-2011-006651

PATIENT
  Age: 65 Year
  Sex: Female

DRUGS (13)
  1. AMIODARONE HCL [Concomitant]
     Dosage: 1 MG/KG/MIN
     Route: 042
     Dates: start: 20071025, end: 20071025
  2. DOBUTAMINE HYDROCHLORIDE [Concomitant]
     Dosage: 5 MCG/KG/MIN
     Route: 042
     Dates: start: 20071025, end: 20071025
  3. NORVASC [Concomitant]
     Dosage: 10 MG, UNK
     Route: 048
  4. ACETYLSALICYLIC ACID SRT [Concomitant]
     Dosage: 325 MG, UNK
     Route: 048
  5. MIDAZOLAM HCL [Concomitant]
     Dosage: 5 MG, UNK
     Route: 042
     Dates: start: 20071025, end: 20071025
  6. METOPROLOL SUCCINATE [Concomitant]
     Dosage: 25 MG, BID
     Route: 048
  7. ANCEF [Concomitant]
     Dosage: 1 G, UNK
     Route: 042
     Dates: start: 20071025, end: 20071025
  8. ZOLOFT [Concomitant]
     Dosage: 50 MG, QD
     Route: 048
  9. ROCURONIUM BROMIDE [Concomitant]
     Dosage: 100 MG, UNK
     Route: 042
     Dates: start: 20071025, end: 20071025
  10. PROTAMINE SULFATE [Concomitant]
     Dosage: UNK
     Dates: start: 20071025, end: 20071025
  11. TRASYLOL [Suspect]
     Indication: AORTIC VALVE REPLACEMENT
     Dosage: UNK
     Route: 042
     Dates: start: 20071026, end: 20071026
  12. TRICOR [Concomitant]
     Dosage: 145 MG, QD
     Route: 048
  13. INSULIN [Concomitant]
     Dosage: 40 U, UNK
     Route: 042
     Dates: start: 20071025, end: 20071025

REACTIONS (12)
  - DEATH [None]
  - FEAR [None]
  - RENAL INJURY [None]
  - EMOTIONAL DISTRESS [None]
  - RENAL IMPAIRMENT [None]
  - ANXIETY [None]
  - MYOCARDIAL INFARCTION [None]
  - PAIN [None]
  - MULTI-ORGAN FAILURE [None]
  - STRESS [None]
  - RENAL FAILURE [None]
  - UNEVALUABLE EVENT [None]
